FAERS Safety Report 16695278 (Version 1)
Quarter: 2019Q3

REPORT INFORMATION
  Report Type: Spontaneous
  Country: ES (occurrence: ES)
  Receive Date: 20190813
  Receipt Date: 20190813
  Transmission Date: 20191004
  Serious: Yes (Life-Threatening, Hospitalization, Other)
  Sender: FDA-Public Use
  Company Number: ES-ACCORD-151036

PATIENT
  Age: 18 Year
  Sex: Male

DRUGS (6)
  1. CYTARABINE/CYTARABINE HYDROCHLORIDE/CYTARABINE OCFOSFATE [Interacting]
     Active Substance: CYTARABINE
     Indication: MYELOID LEUKAEMIA
     Route: 042
     Dates: start: 20190125, end: 20190629
  2. MITOXANTRONE [Interacting]
     Active Substance: MITOXANTRONE HYDROCHLORIDE
     Indication: MYELOID LEUKAEMIA
     Route: 042
     Dates: start: 20190125, end: 20190629
  3. FLUDARABINE/FLUDARABINE PHOSPHATE [Interacting]
     Active Substance: FLUDARABINE PHOSPHATE
     Indication: MYELOID LEUKAEMIA
     Route: 042
     Dates: start: 20190125, end: 20190629
  4. METHOTREXATE. [Interacting]
     Active Substance: METHOTREXATE
     Indication: ACUTE MYELOID LEUKAEMIA
     Route: 037
     Dates: start: 20190125, end: 20190629
  5. ETOPOSIDE. [Suspect]
     Active Substance: ETOPOSIDE
     Indication: MYELOID LEUKAEMIA
     Route: 042
     Dates: start: 20190125, end: 20190629
  6. DAUNORUBICIN [Interacting]
     Active Substance: DAUNORUBICIN
     Indication: MYELOID LEUKAEMIA
     Route: 042
     Dates: start: 20190125, end: 20190629

REACTIONS (2)
  - Drug interaction [Unknown]
  - Septic shock [Recovered/Resolved]

NARRATIVE: CASE EVENT DATE: 20190705
